FAERS Safety Report 4929562-2 (Version None)
Quarter: 2006Q1

REPORT INFORMATION
  Report Type: 
  Country: None (occurrence: None)
  Receive Date: 20060224
  Receipt Date: 20060214
  Transmission Date: 20060701
  Serious: Yes (Hospitalization)
  Sender: FDA-Public Use
  Company Number: 222126

PATIENT
  Age: 59 Year
  Sex: Male
  Weight: 58 kg

DRUGS (12)
  1. MABTHERA(RITUXIMAB) CONC FOR SOLUTION FOR INFUSION [Suspect]
     Indication: CHRONIC LYMPHOCYTIC LEUKAEMIA
     Dosage: 649 MG, QD, INTRAVENOUS
     Route: 042
     Dates: start: 20060119, end: 20060119
  2. FLUDARABINE PHOSPHATE [Suspect]
     Indication: CHRONIC LYMPHOCYTIC LEUKAEMIA
     Dosage: 43 MG, QD, INTRAVENOUS
     Route: 042
     Dates: start: 20060120, end: 20060122
  3. CYCLOPHOSPHAMIDE [Suspect]
     Indication: CHRONIC LYMPHOCYTIC LEUKAEMIA
     Dosage: 630 MG, QD, INTRAVENOUS
     Route: 042
     Dates: start: 20060120, end: 20060122
  4. CLARITHROMYCIN [Concomitant]
  5. CEFUROXIME [Concomitant]
  6. ENALAPRIL MALEATE [Concomitant]
  7. ISOSORBIDE MONONITRATE [Concomitant]
  8. TRAMADOL HCL [Concomitant]
  9. ALLOPURINOL [Concomitant]
  10. DYAZIDE [Concomitant]
  11. TORSEMIDE [Concomitant]
  12. METOPROLOL TARTRATE [Concomitant]

REACTIONS (10)
  - ANOREXIA [None]
  - BLOOD CREATININE INCREASED [None]
  - CONSTIPATION [None]
  - DEHYDRATION [None]
  - FLUID INTAKE REDUCED [None]
  - NAUSEA [None]
  - PYREXIA [None]
  - RASH [None]
  - RENAL IMPAIRMENT [None]
  - VOMITING [None]
